FAERS Safety Report 5864277-8 (Version None)
Quarter: 2008Q3

REPORT INFORMATION
  Report Type: 
  Country: None (occurrence: None)
  Receive Date: 20080829
  Receipt Date: 20080820
  Transmission Date: 20090109
  Serious: Yes (Hospitalization, Other)
  Sender: FDA-Public Use
  Company Number: JP-AMGEN-US283060

PATIENT
  Sex: Female
  Weight: 66 kg

DRUGS (3)
  1. ENBREL [Suspect]
     Indication: RHEUMATOID ARTHRITIS
     Route: 058
     Dates: start: 20080516, end: 20080516
  2. THYRADIN [Concomitant]
     Route: 048
  3. ISONIAZID [Concomitant]
     Indication: ANTIBIOTIC PROPHYLAXIS
     Route: 048
     Dates: start: 20080425, end: 20080520

REACTIONS (16)
  - ARTHRALGIA [None]
  - ASTHENIA [None]
  - BRONCHITIS [None]
  - CARDIAC FAILURE [None]
  - CARDIOMEGALY [None]
  - CHILLS [None]
  - EPISCLERITIS [None]
  - HYPOALBUMINAEMIA [None]
  - HYPOCOMPLEMENTAEMIA [None]
  - INFECTION [None]
  - OEDEMA [None]
  - PAIN [None]
  - PLEURAL EFFUSION [None]
  - POLLAKIURIA [None]
  - PYREXIA [None]
  - RHEUMATOID ARTHRITIS [None]
